FAERS Safety Report 6678110-8 (Version None)
Quarter: 2010Q2

REPORT INFORMATION
  Report Type: 
  Country: None (occurrence: None)
  Receive Date: 20100412
  Receipt Date: 20100405
  Transmission Date: 20101027
  Serious: Yes (Death, Hospitalization)
  Sender: FDA-Public Use
  Company Number: NL-ROCHE-696333

PATIENT

DRUGS (8)
  1. MYCOPHENOLATE MOFETIL [Suspect]
     Route: 065
  2. CAMPATH-1 [Suspect]
     Dosage: FORM: INFUSION OVER 2 HOURS WITHIN 12 HOURS AFTER TRANSPLANT
     Route: 065
  3. TACROLIMUS [Suspect]
     Dosage: TARGET LEVEL APPROXIMATETLY 10 NG/ML
     Route: 065
  4. PREDNISOLONE [Suspect]
     Route: 065
  5. METHYLPREDNISOLONE [Suspect]
     Dosage: PRE-MEDICATION
     Route: 042
  6. METHYLPREDNISOLONE [Suspect]
     Route: 042
  7. ACETAMINOPHEN [Concomitant]
     Indication: PREMEDICATION
  8. DIPHENHYDRAMINE HYDROCHLORIDE [Concomitant]
     Indication: PREMEDICATION
     Route: 042

REACTIONS (1)
  - ACUTE RESPIRATORY DISTRESS SYNDROME [None]
